FAERS Safety Report 9902712 (Version 2)
Quarter: 2014Q3

REPORT INFORMATION
  Report Type: Spontaneous
  Country: US (occurrence: US)
  Receive Date: 20140217
  Receipt Date: 20140808
  Transmission Date: 20150326
  Serious: Yes (Hospitalization, Other)
  Sender: FDA-Public Use
  Company Number: US-009507513-1402USA007322

PATIENT
  Sex: Female

DRUGS (1)
  1. NUVARING [Suspect]
     Active Substance: ETHINYL ESTRADIOL\ETONOGESTREL
     Dosage: UNK
     Route: 067
     Dates: start: 20110130, end: 20111025

REACTIONS (16)
  - Pneumonia [Unknown]
  - Asthma [Unknown]
  - Hypercoagulation [Unknown]
  - Deep vein thrombosis [Unknown]
  - Pulmonary embolism [Unknown]
  - Lymphadenopathy [Unknown]
  - Electrocardiogram T wave inversion [Unknown]
  - Pain [Not Recovered/Not Resolved]
  - Atelectasis [Unknown]
  - Borderline personality disorder [Unknown]
  - Chlamydial infection [Unknown]
  - Bipolar disorder [Unknown]
  - Anxiety [Unknown]
  - Uterine dilation and curettage [Unknown]
  - Hypertensive encephalopathy [Unknown]
  - Depression [Unknown]

NARRATIVE: CASE EVENT DATE: 20111113
